FAERS Safety Report 19757763 (Version 7)
Quarter: 2022Q1

REPORT INFORMATION
  Report Type: Report from Study
  Country: US (occurrence: US)
  Receive Date: 20210828
  Receipt Date: 20220121
  Transmission Date: 20220424
  Serious: No
  Sender: FDA-Public Use
  Company Number: NVSC2021US193616

PATIENT
  Sex: Female
  Weight: 76.19 kg

DRUGS (4)
  1. TREPROSTINIL [Suspect]
     Active Substance: TREPROSTINIL
     Indication: Pulmonary arterial hypertension
     Dosage: 89 NG/KG/MIN
     Route: 042
     Dates: start: 20210723
  2. TREPROSTINIL [Suspect]
     Active Substance: TREPROSTINIL
     Dosage: 89 NG/KG/MIN
     Route: 042
     Dates: start: 20210723
  3. TREPROSTINIL [Suspect]
     Active Substance: TREPROSTINIL
     Dosage: 96 NG/KG/MIN
     Route: 042
     Dates: start: 20210723
  4. OPSUMIT [Concomitant]
     Active Substance: MACITENTAN
     Indication: Product used for unknown indication
     Route: 065

REACTIONS (9)
  - Arthropod sting [Unknown]
  - Dyspnoea [Unknown]
  - Fatigue [Unknown]
  - Swelling [Unknown]
  - Pruritus [Unknown]
  - Device connection issue [Unknown]
  - Erythema [Unknown]
  - Injection site haemorrhage [Unknown]
  - Headache [Unknown]
